FAERS Safety Report 16420281 (Version 2)
Quarter: 2019Q3

REPORT INFORMATION
  Report Type: Spontaneous
  Country: US (occurrence: US)
  Receive Date: 20190612
  Receipt Date: 20190705
  Transmission Date: 20191004
  Serious: No
  Sender: FDA-Public Use
  Company Number: US-PFIZER INC-2019247066

PATIENT
  Age: 50 Year
  Sex: Female

DRUGS (3)
  1. CHANTIX [Suspect]
     Active Substance: VARENICLINE TARTRATE
     Dosage: 0.5 MG, DAILY (TAKE 1 0.5 MG TABLET DAILY FOR 3 DAYS THEN TAKE ONE 0.5 MG TABLET TWICE DAILY FOR 2)
  2. CHANTIX [Suspect]
     Active Substance: VARENICLINE TARTRATE
     Dosage: 0.5 MG, 2X/DAY (THEN ONE 0.5 MG TABLET TWICE DAILY FOR 2 DAYS )
  3. CHANTIX [Suspect]
     Active Substance: VARENICLINE TARTRATE
     Dosage: 1 MG, 2X/DAY (TAKE 1 MG TABLET TWICE DAILY)

REACTIONS (2)
  - Off label use [Unknown]
  - Product use issue [Unknown]
